FAERS Safety Report 7986387-1 (Version None)
Quarter: 2011Q4

REPORT INFORMATION
  Report Type: 
  Country: None (occurrence: None)
  Receive Date: 20111216
  Receipt Date: 20110517
  Transmission Date: 20120403
  Serious: No
  Sender: FDA-Public Use
  Company Number: US-GLAXOSMITHKLINE-A0927595A

PATIENT
  Age: 75 Year
  Sex: Female
  Weight: 50.5 kg

DRUGS (2)
  1. DIAVAN [Concomitant]
  2. COREG CR [Suspect]
     Indication: HYPERTENSION
     Dosage: 10MG PER DAY
     Route: 048
     Dates: start: 20080101

REACTIONS (1)
  - WEIGHT INCREASED [None]
